FAERS Safety Report 15271727 (Version 1)
Quarter: 2018Q3

REPORT INFORMATION
  Report Type: Report from Study
  Country: EG (occurrence: EG)
  Receive Date: 20180813
  Receipt Date: 20180813
  Transmission Date: 20181010
  Serious: Yes (Other)
  Sender: FDA-Public Use
  Company Number: EG-ROCHE-2163658

PATIENT

DRUGS (1)
  1. CAPECITABINE. [Suspect]
     Active Substance: CAPECITABINE
     Indication: RECTAL CANCER
     Route: 048

REACTIONS (18)
  - Renal impairment [Unknown]
  - Dry mouth [Unknown]
  - Hypersensitivity [Unknown]
  - Pigmentation disorder [Unknown]
  - Palmar-plantar erythrodysaesthesia syndrome [Unknown]
  - Vomiting [Unknown]
  - Dysgeusia [Unknown]
  - Nail disorder [Unknown]
  - Hepatotoxicity [Unknown]
  - Mucosal inflammation [Unknown]
  - Neutropenia [Unknown]
  - Neurotoxicity [Unknown]
  - Cardiotoxicity [Unknown]
  - Anaemia [Unknown]
  - Thrombocytopenia [Unknown]
  - Alopecia [Unknown]
  - Diarrhoea [Unknown]
  - Gingival bleeding [Unknown]
